FAERS Safety Report 24547523 (Version 2)
Quarter: 2025Q1

REPORT INFORMATION
  Report Type: Spontaneous
  Country: CA (occurrence: CA)
  Receive Date: 20241025
  Receipt Date: 20250212
  Transmission Date: 20250409
  Serious: Yes (Hospitalization)
  Sender: ROCHE
  Company Number: CA-002147023-NVSC2024CA205711

PATIENT
  Age: 49 Year
  Sex: Female

DRUGS (1)
  1. OMALIZUMAB [Suspect]
     Active Substance: OMALIZUMAB
     Indication: Chronic spontaneous urticaria
     Dosage: 300 MG, Q5W
     Route: 050

REACTIONS (8)
  - Haemorrhage [Recovering/Resolving]
  - Hypersensitivity [Unknown]
  - Upper limb fracture [Recovering/Resolving]
  - Urticaria [Recovering/Resolving]
  - Acne [Recovering/Resolving]
  - Fall [Unknown]
  - Nasopharyngitis [Recovering/Resolving]
  - Swelling [Recovering/Resolving]
